FAERS Safety Report 6134495-2 (Version None)
Quarter: 2009Q1

REPORT INFORMATION
  Report Type: 
  Country: None (occurrence: None)
  Receive Date: 20090327
  Receipt Date: 20090319
  Transmission Date: 20090719
  Serious: Yes (Hospitalization)
  Sender: FDA-Public Use
  Company Number: US-JNJFOC-20090305574

PATIENT
  Sex: Female
  Weight: 55.79 kg

DRUGS (4)
  1. LEVAQUIN [Suspect]
     Indication: KIDNEY INFECTION
     Route: 048
  2. HUMIRA [Suspect]
     Indication: JUVENILE ARTHRITIS
     Dosage: 40MG/0.8 ML PEN (40 MG)
     Route: 058
  3. BACTRIM [Suspect]
     Indication: DRUG USE FOR UNKNOWN INDICATION
     Route: 065
  4. CELECOXIB [Concomitant]
     Indication: JUVENILE ARTHRITIS
     Route: 065

REACTIONS (3)
  - GASTROENTERITIS VIRAL [None]
  - KIDNEY INFECTION [None]
  - VOMITING [None]
